FAERS Safety Report 9637099 (Version 2)
Quarter: 2013Q4

REPORT INFORMATION
  Report Type: Spontaneous
  Country: IT (occurrence: IT)
  Receive Date: 20131022
  Receipt Date: 20131105
  Transmission Date: 20140711
  Serious: Yes (Hospitalization, Other)
  Sender: FDA-Public Use
  Company Number: IT-BRISTOL-MYERS SQUIBB COMPANY-19533363

PATIENT
  Age: 82 Year
  Sex: Female

DRUGS (6)
  1. COUMADIN TABS 5 MG [Suspect]
     Indication: ATRIAL FIBRILLATION
     Route: 048
     Dates: start: 20001001, end: 20131002
  2. METFORMIN HCL [Concomitant]
     Route: 048
  3. EUTIROX [Concomitant]
     Dosage: TABS
  4. BIFRIL [Concomitant]
     Dosage: TABS
  5. RYTMONORM [Concomitant]
     Dosage: TABS
  6. CARDICOR [Concomitant]
     Dosage: TABS

REACTIONS (5)
  - Melaena [Recovering/Resolving]
  - Anaemia [Recovering/Resolving]
  - Presyncope [Recovering/Resolving]
  - Coagulation test abnormal [Recovering/Resolving]
  - Overdose [Unknown]
